FAERS Safety Report 6303847-X (Version None)
Quarter: 2009Q3

REPORT INFORMATION
  Report Type: 
  Country: None (occurrence: None)
  Receive Date: 20090807
  Receipt Date: 20090807
  Transmission Date: 20100115
  Serious: Yes (Hospitalization)
  Sender: FDA-Public Use
  Company Number: None

PATIENT
  Age: 58 Year
  Sex: Male

DRUGS (2)
  1. LEVOFLOXACIN [Suspect]
     Indication: PNEUMONIA
     Dosage: 750 MG, EVERY DAY, IV
     Route: 042
     Dates: start: 20090507, end: 20090509
  2. MOXIFLOXACIN HCL [Suspect]
     Dosage: 400 MG, EVERY DAY, PO
     Route: 048
     Dates: start: 20090510, end: 20090512

REACTIONS (1)
  - THROMBOCYTOPENIA [None]
